FAERS Safety Report 10061207 (Version 2)
Quarter: 2014Q2

REPORT INFORMATION
  Report Type: Report from Study
  Country: EG (occurrence: EG)
  Receive Date: 20140407
  Receipt Date: 20140407
  Transmission Date: 20141212
  Serious: Yes (Hospitalization, Other)
  Sender: FDA-Public Use
  Company Number: EG-ROCHE-1312194

PATIENT
  Age: 65 Year
  Sex: Female

DRUGS (4)
  1. PEGASYS [Suspect]
     Indication: CHRONIC HEPATITIS C
     Route: 058
     Dates: start: 20131116
  2. COPEGUS [Suspect]
     Indication: HEPATITIS C
     Route: 048
     Dates: start: 20131106
  3. COAPROVEL [Concomitant]
     Indication: HYPERTENSION
     Dosage: STARTED 4 YEARS AGO
     Route: 048
  4. VITAMIN B12 [Concomitant]
     Indication: NEURALGIA
     Dosage: 1 VIAL
     Route: 042

REACTIONS (14)
  - Haemorrhage [Unknown]
  - Hepatic enzyme increased [Unknown]
  - Lid lag [Recovering/Resolving]
  - Dry eye [Recovering/Resolving]
  - Platelet count decreased [Not Recovered/Not Resolved]
  - Diarrhoea [Recovered/Resolved]
  - Rectal tenesmus [Not Recovered/Not Resolved]
  - Dizziness [Recovering/Resolving]
  - Hypoaesthesia [Not Recovered/Not Resolved]
  - Decreased activity [Not Recovered/Not Resolved]
  - Fatigue [Not Recovered/Not Resolved]
  - Muscle spasms [Not Recovered/Not Resolved]
  - Decreased appetite [Recovering/Resolving]
  - Proctalgia [Recovering/Resolving]
